FAERS Safety Report 5067894-0 (Version None)
Quarter: 2006Q3

REPORT INFORMATION
  Report Type: 
  Country: None (occurrence: None)
  Receive Date: 20060714
  Receipt Date: 20051021
  Transmission Date: 20061208
  Serious: Yes (Other)
  Sender: FDA-Public Use
  Company Number: HQWYE261826OCT05

PATIENT
  Sex: Female

DRUGS (1)
  1. ADVIL [Suspect]
     Indication: HEADACHE
     Dosage: 50 TABLETS IN THE PAST 12 HOURS, ORAL
     Route: 048
     Dates: start: 20051020

REACTIONS (1)
  - OVERDOSE [None]
